FAERS Safety Report 15766579 (Version 4)
Quarter: 2019Q3

REPORT INFORMATION
  Report Type: Report from Study
  Country: US (occurrence: US)
  Receive Date: 20181227
  Receipt Date: 20190702
  Transmission Date: 20191004
  Serious: Yes (Hospitalization)
  Sender: FDA-Public Use
  Company Number: PHEH2018US054341

PATIENT
  Sex: Female

DRUGS (1)
  1. PROMACTA [Suspect]
     Active Substance: ELTROMBOPAG OLAMINE
     Indication: FATIGUE
     Dosage: 1 DF, QD
     Route: 048

REACTIONS (8)
  - Malaise [Unknown]
  - Memory impairment [Unknown]
  - Hypoacusis [Unknown]
  - Mobility decreased [Unknown]
  - Confusional state [Unknown]
  - Platelet count decreased [Unknown]
  - Asthenia [Unknown]
  - Product use in unapproved indication [Unknown]
